FAERS Safety Report 7423036-5 (Version None)
Quarter: 2011Q2

REPORT INFORMATION
  Report Type: 
  Country: None (occurrence: None)
  Receive Date: 20110411
  Receipt Date: 20110330
  Transmission Date: 20111010
  Serious: Yes (Other)
  Sender: FDA-Public Use
  Company Number: 880118

PATIENT
  Age: 62 Year
  Sex: Female

DRUGS (2)
  1. OXALIPLATIN [Suspect]
     Indication: COLON CANCER
     Dosage: 225 MG MILLIGRAM(S), INTRAVENOUS; INTRAVENOUS
     Route: 042
     Dates: start: 20110328
  2. OXALIPLATIN [Suspect]
     Indication: COLON CANCER
     Dosage: 225 MG MILLIGRAM(S), INTRAVENOUS; INTRAVENOUS
     Route: 042
     Dates: start: 20101213, end: 20110307

REACTIONS (2)
  - PRESYNCOPE [None]
  - THROAT TIGHTNESS [None]
